FAERS Safety Report 16383614 (Version 1)
Quarter: 2019Q3

REPORT INFORMATION
  Report Type: Spontaneous
  Country: US (occurrence: US)
  Receive Date: 20190531
  Receipt Date: 20190531
  Transmission Date: 20191004
  Serious: Yes (Disabling)
  Sender: FDA-Public Use
  Company Number: None

PATIENT
  Age: 28 Year
  Sex: Male
  Weight: 92.25 kg

DRUGS (1)
  1. LEXAPRO [Suspect]
     Active Substance: ESCITALOPRAM OXALATE
     Dates: start: 20070901, end: 20181201

REACTIONS (9)
  - Impaired quality of life [None]
  - Headache [None]
  - Paraesthesia [None]
  - Sexual dysfunction [None]
  - Withdrawal syndrome [None]
  - Palpitations [None]
  - Fatigue [None]
  - Pollakiuria [None]
  - Skin burning sensation [None]
